FAERS Safety Report 25951788 (Version 1)
Quarter: 2025Q4

REPORT INFORMATION
  Report Type: Spontaneous
  Country: US (occurrence: US)
  Receive Date: 20251023
  Receipt Date: 20251023
  Transmission Date: 20260118
  Serious: No
  Sender: IPSEN BIOPHARMACEUTICALS, INC.
  Company Number: US-IPSEN Group, Research and Development-2025-17760

PATIENT
  Age: 39 Year
  Sex: Male
  Weight: 77 kg

DRUGS (16)
  1. TAZVERIK [Suspect]
     Active Substance: TAZEMETOSTAT HYDROBROMIDE
     Indication: Follicular lymphoma stage I
     Route: 048
     Dates: start: 20250307
  2. ACYCLOVIR [Concomitant]
     Active Substance: ACYCLOVIR
  3. ADVIL [Concomitant]
     Active Substance: IBUPROFEN
  4. BACTRIM [Concomitant]
     Active Substance: SULFAMETHOXAZOLE\TRIMETHOPRIM
  5. BENEFIBER [Concomitant]
     Active Substance: STARCH, WHEAT
     Dosage: BENEFIBER DRINK MIX
  6. VITAMINS [Concomitant]
     Active Substance: VITAMINS
  7. COENZYME Q10 [Concomitant]
     Active Substance: DIETARY SUPPLEMENT\UBIDECARENONE
  8. DIAZEPAM [Concomitant]
     Active Substance: DIAZEPAM
  9. DOVATO [Concomitant]
     Active Substance: DOLUTEGRAVIR SODIUM\LAMIVUDINE
  10. MELATONIN [Concomitant]
     Active Substance: MELATONIN
  11. PROCHLORPERAZINE [Concomitant]
     Active Substance: PROCHLORPERAZINE
  12. ROSUVASTATIN [Concomitant]
     Active Substance: ROSUVASTATIN
  13. WELLBUTRIN XL [Concomitant]
     Active Substance: BUPROPION HYDROCHLORIDE
  14. ZOFRAN [Concomitant]
     Active Substance: ONDANSETRON HYDROCHLORIDE
  15. TADALAFIL [Concomitant]
     Active Substance: TADALAFIL
  16. Centrum Adults [Concomitant]

REACTIONS (2)
  - Product dose omission issue [Unknown]
  - Somnolence [Not Recovered/Not Resolved]

NARRATIVE: CASE EVENT DATE: 20250101
